FAERS Safety Report 21056486 (Version 2)
Quarter: 2022Q3

REPORT INFORMATION
  Report Type: Report from Study
  Country: US (occurrence: US)
  Receive Date: 20220708
  Receipt Date: 20220824
  Transmission Date: 20221027
  Serious: Yes (Hospitalization, Other)
  Sender: FDA-Public Use
  Company Number: US-NOVARTISPH-NVSC2022US150930

PATIENT
  Sex: Female

DRUGS (1)
  1. ENTRESTO [Suspect]
     Active Substance: SACUBITRIL\VALSARTAN
     Indication: Cardiac failure
     Dosage: 1 DOSAGE FORM, BID (24/26 MG)
     Route: 048
     Dates: start: 202102

REACTIONS (12)
  - General physical health deterioration [Unknown]
  - Ejection fraction decreased [Unknown]
  - Multiple fractures [Unknown]
  - Memory impairment [Unknown]
  - Back disorder [Unknown]
  - Back pain [Unknown]
  - Arthralgia [Unknown]
  - Asthenia [Unknown]
  - Epistaxis [Unknown]
  - Fall [Unknown]
  - Balance disorder [Unknown]
  - Hyperhidrosis [Unknown]
